FAERS Safety Report 7654084-8 (Version None)
Quarter: 2011Q3

REPORT INFORMATION
  Report Type: 
  Country: None (occurrence: None)
  Receive Date: 20110803
  Receipt Date: 20110725
  Transmission Date: 20111222
  Serious: Yes (Other)
  Sender: FDA-Public Use
  Company Number: PHFR2011GB02422

PATIENT
  Sex: Male

DRUGS (2)
  1. CLOZAPINE [Suspect]
     Indication: SCHIZOPHRENIA
     Dosage: 550 MG
     Route: 048
     Dates: start: 20110211, end: 20110415
  2. CLOZAPINE [Suspect]
     Dosage: 400 MG, UNK
     Dates: end: 20110415

REACTIONS (7)
  - PALPITATIONS [None]
  - MALAISE [None]
  - SINUS TACHYCARDIA [None]
  - BUNDLE BRANCH BLOCK LEFT [None]
  - INTENTIONAL SELF-INJURY [None]
  - CHEST PAIN [None]
  - HEART RATE INCREASED [None]
